FAERS Safety Report 6701258-6 (Version None)
Quarter: 2010Q2

REPORT INFORMATION
  Report Type: 
  Country: None (occurrence: None)
  Receive Date: 20100427
  Receipt Date: 20100413
  Transmission Date: 20101027
  Serious: Yes (Death, Other)
  Sender: FDA-Public Use
  Company Number: 009547

PATIENT
  Age: 16 Year
  Sex: Female

DRUGS (4)
  1. BUSULFEX [Suspect]
     Indication: STEM CELL TRANSPLANT
     Dosage: 1 MG/KG
  2. CYCLOPHOSPHAMIDE [Concomitant]
  3. MELPHALAN HYDROCHLORIDE [Concomitant]
  4. ETOPOSIDE [Concomitant]

REACTIONS (10)
  - CARDIOTOXICITY [None]
  - COMPLICATIONS OF BONE MARROW TRANSPLANT [None]
  - DIARRHOEA [None]
  - GRAFT VERSUS HOST DISEASE [None]
  - INFECTION [None]
  - LEUKOPENIA [None]
  - MUCOSAL INFLAMMATION [None]
  - MYELODYSPLASTIC SYNDROME [None]
  - SKIN TOXICITY [None]
  - THROMBOCYTOPENIA [None]
